FAERS Safety Report 8174092-0 (Version None)
Quarter: 2012Q1

REPORT INFORMATION
  Report Type: 
  Country: None (occurrence: None)
  Receive Date: 20120229
  Receipt Date: 20120222
  Transmission Date: 20120608
  Serious: Yes (Hospitalization)
  Sender: FDA-Public Use
  Company Number: FR-VERTEX PHARMACEUTICALS INC.-000000000000000232

PATIENT
  Sex: Female
  Weight: 51 kg

DRUGS (11)
  1. TRUVADA [Concomitant]
     Indication: HIV INFECTION
     Dates: start: 20110401
  2. RISEDRONATE SODIUM [Concomitant]
     Indication: OSTEOPOROSIS
     Dates: start: 20070101
  3. TELAPREVIR [Suspect]
     Indication: HEPATITIS C
     Dosage: DOSAGE FORM: TABLET
     Route: 048
     Dates: start: 20120106
  4. METHADONE HCL [Concomitant]
     Indication: DRUG DEPENDENCE
     Dates: start: 19930101
  5. NEORECORMON [Concomitant]
     Indication: ANAEMIA
     Dates: start: 20111209
  6. VITAMIN D [Concomitant]
     Indication: OSTEOPOROSIS
     Dates: start: 20070101
  7. ISENTRESS [Concomitant]
     Indication: HIV INFECTION
     Dates: start: 20110401
  8. COPEGUS [Concomitant]
     Indication: HEPATITIS C
     Dates: start: 20111209
  9. EFFEXOR [Concomitant]
     Indication: DEPRESSION
  10. PEGASYS [Concomitant]
     Indication: HEPATITIS C
     Dates: start: 20111209
  11. CLONAZEPAM [Concomitant]
     Indication: DEPRESSION

REACTIONS (3)
  - LOWER RESPIRATORY TRACT INFECTION BACTERIAL [None]
  - PYREXIA [None]
  - NASOPHARYNGITIS [None]
